FAERS Safety Report 12836913 (Version 4)
Quarter: 2016Q4

REPORT INFORMATION
  Report Type: Spontaneous
  Country: US (occurrence: US)
  Receive Date: 20161011
  Receipt Date: 20161031
  Transmission Date: 20170207
  Serious: Yes (Other)
  Sender: FDA-Public Use
  Company Number: US-BAXALTA-2016BLT007165

PATIENT
  Age: 8 Year
  Sex: Male
  Weight: 36.1 kg

DRUGS (3)
  1. ADVATE [Suspect]
     Active Substance: ANTIHEMOPHILIC FACTOR, HUMAN RECOMBINANT
     Indication: PROPHYLAXIS
     Dosage: 30 UNITS/KG, 2X A WEEK; MON + WED; PROPHYLAXIS
     Route: 065
     Dates: start: 20160503
  2. ADVATE [Suspect]
     Active Substance: ANTIHEMOPHILIC FACTOR, HUMAN RECOMBINANT
     Indication: FACTOR VIII DEFICIENCY
     Dosage: 50 UNITS/KG, 1X A WEEK; FRI; PROPHYLAXIS
     Route: 065
     Dates: start: 20160503
  3. ADVATE [Suspect]
     Active Substance: ANTIHEMOPHILIC FACTOR, HUMAN RECOMBINANT
     Dosage: 1500 U, 1X A DAY; X 5 DAYS
     Route: 065
     Dates: start: 20160921

REACTIONS (4)
  - Penile haematoma [Recovered/Resolved]
  - Urticaria [Recovering/Resolving]
  - Rash [Recovered/Resolved]
  - Hypersensitivity [Recovered/Resolved]

NARRATIVE: CASE EVENT DATE: 201609
